FAERS Safety Report 11381143 (Version 1)
Quarter: 2015Q3

REPORT INFORMATION
  Report Type: Report from Study
  Country: RO (occurrence: RO)
  Receive Date: 20150814
  Receipt Date: 20150814
  Transmission Date: 20151125
  Serious: Yes (Life-Threatening, Hospitalization, Other)
  Sender: FDA-Public Use
  Company Number: RO-CELGENE-135-21880-11042163

PATIENT
  Age: 61 Year
  Sex: Male
  Weight: 79 kg

DRUGS (17)
  1. CARFILZOMIB [Suspect]
     Active Substance: CARFILZOMIB
     Route: 065
     Dates: start: 20110124
  2. DEXAMETHASONE. [Suspect]
     Active Substance: DEXAMETHASONE
     Indication: PLASMA CELL MYELOMA
     Dosage: DAYS 1, 8, 15 AND 22
     Route: 065
     Dates: start: 20110124, end: 20110214
  3. ZOMETA [Concomitant]
     Active Substance: ZOLEDRONIC ACID
     Indication: PRODUCT USED FOR UNKNOWN INDICATION
     Dosage: 15 MILLIGRAM
     Route: 041
     Dates: start: 20110123, end: 20110220
  4. EPOETINUM BETA [Concomitant]
     Indication: ANAEMIA
     Dosage: 100 MILLIGRAM
     Route: 058
     Dates: start: 20110126, end: 20110401
  5. SPIRONOLACTONE. [Concomitant]
     Active Substance: SPIRONOLACTONE
     Indication: OEDEMA
     Route: 048
     Dates: start: 20110126, end: 20110131
  6. CLOTRIMAZOLE. [Concomitant]
     Active Substance: CLOTRIMAZOLE
     Indication: EAR INFECTION
     Dosage: 10 MILLILITER
     Route: 061
     Dates: start: 20110308, end: 20110316
  7. REVLIMID [Suspect]
     Active Substance: LENALIDOMIDE
     Indication: PLASMA CELL MYELOMA
     Dosage: DAY 1-21
     Route: 048
     Dates: start: 20110124, end: 20110213
  8. DEXAMETHASONE. [Suspect]
     Active Substance: DEXAMETHASONE
     Dosage: DAY 1+8
     Route: 065
     Dates: start: 20110321, end: 20110328
  9. HELICID [Concomitant]
     Indication: PEPTIC ULCER
     Route: 048
     Dates: start: 20110114, end: 20110124
  10. CARFILZOMIB [Suspect]
     Active Substance: CARFILZOMIB
     Route: 065
     Dates: start: 20110321, end: 20110321
  11. ACYCLOVIR. [Concomitant]
     Active Substance: ACYCLOVIR
     Indication: ANTIVIRAL PROPHYLAXIS
     Route: 048
     Dates: start: 20110123, end: 20110221
  12. ASPIRINE [Concomitant]
     Active Substance: ASPIRIN
     Indication: ANTICOAGULANT THERAPY
     Route: 048
     Dates: start: 20110123, end: 20110129
  13. REVLIMID [Suspect]
     Active Substance: LENALIDOMIDE
     Dosage: DAY 1-11
     Route: 048
     Dates: start: 20110321, end: 20110331
  14. CARFILZOMIB [Suspect]
     Active Substance: CARFILZOMIB
     Indication: PLASMA CELL MYELOMA
     Dosage: DAY 8-9, 15-16
     Route: 065
     Dates: start: 20110131, end: 20110208
  15. CIPROFLOXACIN. [Concomitant]
     Active Substance: CIPROFLOXACIN
     Indication: ANTIBIOTIC PROPHYLAXIS
     Dosage: 400 MILLIGRAM
     Route: 048
     Dates: start: 20110123, end: 20110401
  16. LANSOPRAZOL [Concomitant]
     Active Substance: LANSOPRAZOLE
     Indication: PRODUCT USED FOR UNKNOWN INDICATION
     Dosage: 500 MILLIGRAM
     Route: 048
     Dates: start: 20110123, end: 20110401
  17. CIPRINOL [Concomitant]
     Indication: PNEUMONIA
     Route: 041
     Dates: start: 20110106, end: 20110114

REACTIONS (8)
  - Hypoalbuminaemia [Not Recovered/Not Resolved]
  - Hypocalcaemia [Recovered/Resolved]
  - Electrolyte imbalance [Recovered/Resolved]
  - Hypoalbuminaemia [Recovered/Resolved]
  - Electrolyte imbalance [Not Recovered/Not Resolved]
  - Intestinal obstruction [Recovered/Resolved]
  - Electrolyte imbalance [Not Recovered/Not Resolved]
  - Hypoalbuminaemia [Not Recovered/Not Resolved]

NARRATIVE: CASE EVENT DATE: 20110214
